FAERS Safety Report 22384548 (Version 2)
Quarter: 2023Q2

REPORT INFORMATION
  Report Type: Spontaneous
  Country: US (occurrence: US)
  Receive Date: 20230530
  Receipt Date: 20230629
  Transmission Date: 20230721
  Serious: Yes (Hospitalization)
  Sender: FDA-Public Use
  Company Number: US-Calliditas-2023CAL00507

PATIENT
  Age: 78 Year
  Sex: Male

DRUGS (1)
  1. TARPEYO [Suspect]
     Active Substance: BUDESONIDE
     Indication: IgA nephropathy
     Dosage: 16MG (4MG CAPSULES) ONCE DAILY
     Route: 048
     Dates: start: 20221130

REACTIONS (5)
  - Hospitalisation [Unknown]
  - Fluid retention [Unknown]
  - Swelling [Unknown]
  - Fatigue [Unknown]
  - Mobility decreased [Unknown]
